FAERS Safety Report 8682529 (Version 6)
Quarter: 2014Q1

REPORT INFORMATION
  Report Type: Report from Study
  Country: GB (occurrence: GB)
  Receive Date: 20120725
  Receipt Date: 20140224
  Transmission Date: 20141002
  Serious: Yes (Other)
  Sender: FDA-Public Use
  Company Number: GB-ROCHE-1090928

PATIENT
  Age: 68 Year
  Sex: Male
  Weight: 61.3 kg

DRUGS (31)
  1. RITUXIMAB [Suspect]
     Indication: B-CELL LYMPHOMA
     Route: 042
     Dates: start: 20120502
  2. RHUPH20/RITUXIMAB [Suspect]
     Indication: B-CELL LYMPHOMA
     Dosage: LAST DOSE PRIOR TO SAE:09/JUL/2012
     Route: 058
     Dates: start: 20120530
  3. RHUPH20/RITUXIMAB [Suspect]
     Dosage: LAST DOSE PRIOR TO SAE:09/JUL/2012; MAINTENANCE FOR 24 MONTHS
     Route: 058
     Dates: start: 20120709
  4. NORMAL SALINE [Concomitant]
     Indication: OESOPHAGITIS
     Route: 042
  5. ENOXAPARIN [Concomitant]
     Indication: THROMBOSIS PROPHYLAXIS
     Route: 065
     Dates: start: 20120609, end: 20120610
  6. AMOXYCILLIN [Concomitant]
     Route: 065
     Dates: start: 20120610, end: 20120614
  7. AMOXYCILLIN [Concomitant]
     Route: 065
     Dates: start: 20120703, end: 20120708
  8. CO-TRIMOXAZOLE [Concomitant]
     Route: 065
     Dates: start: 20120502
  9. QUININE SULFATE [Concomitant]
     Indication: MUSCLE SPASMS
     Route: 065
     Dates: start: 20060427
  10. OPTIVE LUBRICANT EYE DROPS [Concomitant]
     Indication: DRY EYE
     Route: 050
     Dates: start: 20120201
  11. AUGMENTIN [Concomitant]
     Indication: LOWER RESPIRATORY TRACT INFECTION
     Route: 065
     Dates: start: 20120604, end: 20120604
  12. AUGMENTIN [Concomitant]
     Route: 065
     Dates: start: 20120604, end: 20120608
  13. AUGMENTIN [Concomitant]
     Route: 065
     Dates: start: 20120514
  14. CO-CODAMOL [Concomitant]
     Indication: PAIN
     Dosage: 30/500; 120MG/4G
     Route: 065
     Dates: start: 20120326
  15. ONDANSETRON [Concomitant]
     Indication: VOMITING
     Route: 065
     Dates: start: 20120502
  16. LENOGRASTIM [Concomitant]
     Indication: NEUTROPENIA
     Route: 065
     Dates: start: 20120703, end: 20120708
  17. OMEPRAZOLE [Concomitant]
     Indication: PROPHYLAXIS AGAINST GASTROINTESTINAL ULCER
     Route: 065
     Dates: start: 20110209
  18. LACRI-LUBE (UNITED KINGDOM) [Concomitant]
     Indication: DRY EYE
     Route: 065
     Dates: start: 20120514, end: 20120625
  19. ACICLOVIR [Concomitant]
     Indication: ULCER
     Route: 065
     Dates: start: 20120813, end: 20120817
  20. DOXYCYCLINE [Concomitant]
     Indication: OROPHARYNGEAL PAIN
     Route: 065
     Dates: start: 20120813
  21. ALLOPURINOL [Concomitant]
     Route: 065
     Dates: start: 20120502, end: 20120606
  22. DIFFLAM [Concomitant]
     Indication: OESOPHAGITIS
     Route: 065
     Dates: start: 20120827, end: 20120913
  23. CASPOFUNGIN [Concomitant]
     Indication: OESOPHAGITIS
     Route: 065
     Dates: start: 20120903, end: 20120913
  24. ESOMEPRAZOLE [Concomitant]
     Indication: OESOPHAGITIS
     Route: 065
     Dates: start: 20120830, end: 20120914
  25. METOCLOPRAMIDE [Concomitant]
     Indication: OESOPHAGITIS
     Route: 065
     Dates: start: 20120831, end: 20120907
  26. CODEINE [Concomitant]
     Dosage: 30-60 MG
     Route: 065
     Dates: start: 20120823, end: 20120913
  27. PIRITON [Concomitant]
     Dosage: 4-8 MG
     Route: 065
     Dates: start: 20120910, end: 20120912
  28. FLUCONAZOLE [Concomitant]
     Indication: OESOPHAGITIS
     Route: 042
     Dates: start: 20120822, end: 20120822
  29. FLUDARABINE [Concomitant]
     Indication: PREMEDICATION
     Route: 065
     Dates: start: 20120430, end: 20120806
  30. CYCLOPHOSPHAMID [Concomitant]
     Indication: PREMEDICATION
     Route: 065
     Dates: start: 20120430, end: 20120806
  31. SEPTRIN [Concomitant]
     Route: 065
     Dates: start: 20120430, end: 20120806

REACTIONS (1)
  - Injection site erythema [Recovered/Resolved]
